FAERS Safety Report 6026945-7 (Version None)
Quarter: 2009Q1

REPORT INFORMATION
  Report Type: 
  Country: None (occurrence: None)
  Receive Date: 20090105
  Receipt Date: 20081223
  Transmission Date: 20090719
  Serious: Yes (Hospitalization)
  Sender: FDA-Public Use
  Company Number: PHHY2008SE32943

PATIENT
  Sex: Female

DRUGS (2)
  1. ESIDRIX [Suspect]
     Dosage: UNK
     Dates: end: 20081020
  2. BISOPROLOL FUMARATE [Concomitant]

REACTIONS (3)
  - ANGINA PECTORIS [None]
  - CHEST PAIN [None]
  - HYPONATRAEMIA [None]
